FAERS Safety Report 23958266 (Version 1)
Quarter: 2024Q2

REPORT INFORMATION
  Report Type: Report from Study
  Country: US (occurrence: US)
  Receive Date: 20240610
  Receipt Date: 20240610
  Transmission Date: 20240716
  Serious: Yes (Death, Hospitalization)
  Sender: FDA-Public Use
  Company Number: US-OTSUKA-2024_016251

PATIENT
  Sex: Male

DRUGS (2)
  1. DEXTROMETHORPHAN HYDROBROMIDE\QUINIDINE SULFATE [Suspect]
     Active Substance: DEXTROMETHORPHAN HYDROBROMIDE\QUINIDINE SULFATE
     Indication: Affect lability
     Dosage: 1 DF (20/10 MG), BID
     Route: 048
     Dates: start: 20230821
  2. ZOLOFT [Concomitant]
     Active Substance: SERTRALINE HYDROCHLORIDE
     Indication: Depression
     Dosage: 1.5 DF, QD (AS INSTRUCTED EVERY MORNING)
     Route: 065
     Dates: start: 20220616

REACTIONS (2)
  - Death [Fatal]
  - Hypoxia [Recovering/Resolving]
